FAERS Safety Report 6937786-8 (Version None)
Quarter: 2010Q3

REPORT INFORMATION
  Report Type: 
  Country: None (occurrence: None)
  Receive Date: 20100820
  Receipt Date: 20100820
  Transmission Date: 20110219
  Serious: Yes (Hospitalization)
  Sender: FDA-Public Use
  Company Number: None

PATIENT
  Sex: Male
  Weight: 79 kg

DRUGS (9)
  1. TORISEL [Suspect]
     Indication: PROSTATE CANCER
     Dosage: 25 MG WEEKLY IV
     Route: 042
  2. AMBIEN [Concomitant]
  3. LIPITOR [Concomitant]
  4. LISINOPRIL [Concomitant]
  5. LUPRON [Concomitant]
  6. MEGACE [Concomitant]
  7. NORCO [Concomitant]
  8. PHENAZOPYRIDINE HCL TAB [Concomitant]
  9. EXJADE [Concomitant]

REACTIONS (5)
  - DEHYDRATION [None]
  - NAUSEA [None]
  - NEPHROLITHIASIS [None]
  - RENAL FAILURE [None]
  - VOMITING [None]
